FAERS Safety Report 11493477 (Version 1)
Quarter: 2015Q3

REPORT INFORMATION
  Report Type: Spontaneous
  Country: US (occurrence: US)
  Receive Date: 20150911
  Receipt Date: 20150911
  Transmission Date: 20151125
  Serious: No
  Sender: FDA-Public Use
  Company Number: US-ROCHE-1037661

PATIENT
  Sex: Male

DRUGS (2)
  1. COPEGUS [Suspect]
     Active Substance: RIBAVIRIN
     Indication: HEPATITIS C
     Route: 065
  2. PEGASYS [Suspect]
     Active Substance: PEGINTERFERON ALFA-2A
     Indication: HEPATITIS C
     Route: 065

REACTIONS (8)
  - Platelet count decreased [Unknown]
  - Headache [Unknown]
  - Hepatojugular reflux [Unknown]
  - Hepatic steatosis [Unknown]
  - Insomnia [Unknown]
  - Therapeutic response decreased [Unknown]
  - White blood cell count decreased [Unknown]
  - Pruritus [Unknown]
